FAERS Safety Report 8093767-5 (Version None)
Quarter: 2012Q1

REPORT INFORMATION
  Report Type: 
  Country: None (occurrence: None)
  Receive Date: 20120129
  Receipt Date: 20111018
  Transmission Date: 20120608
  Serious: No
  Sender: FDA-Public Use
  Company Number: US-ABBOTT-11P-163-0866174-00

PATIENT
  Sex: Female
  Weight: 68.1 kg

DRUGS (2)
  1. HUMIRA [Suspect]
     Indication: ARTHRITIS
     Route: 058
     Dates: start: 20110201, end: 20110910
  2. HUMIRA [Suspect]
     Indication: COLITIS ULCERATIVE

REACTIONS (8)
  - ARTHRITIS [None]
  - THERAPEUTIC RESPONSE UNEXPECTED [None]
  - DRUG DOSE OMISSION [None]
  - INCORRECT PRODUCT STORAGE [None]
  - ARTHRALGIA [None]
  - POOR QUALITY DRUG ADMINISTERED [None]
  - OFF LABEL USE [None]
  - COLITIS ULCERATIVE [None]
